FAERS Safety Report 15214400 (Version 1)
Quarter: 2018Q3

REPORT INFORMATION
  Report Type: Spontaneous
  Country: JP (occurrence: JP)
  Receive Date: 20180730
  Receipt Date: 20180730
  Transmission Date: 20181010
  Serious: Yes (Other)
  Sender: FDA-Public Use
  Company Number: PHHY2018JP058288

PATIENT
  Age: 70 Year
  Sex: Male

DRUGS (1)
  1. RIVASTACH [Suspect]
     Active Substance: RIVASTIGMINE
     Indication: DEMENTIA ALZHEIMER^S TYPE
     Route: 062

REACTIONS (3)
  - Blood cholinesterase decreased [Recovering/Resolving]
  - Diarrhoea [Recovering/Resolving]
  - Pneumonia aspiration [Recovering/Resolving]
